FAERS Safety Report 12687378 (Version 1)
Quarter: 2016Q3

REPORT INFORMATION
  Report Type: Report from Study
  Country: BR (occurrence: BR)
  Receive Date: 20160825
  Receipt Date: 20160825
  Transmission Date: 20161109
  Serious: Yes (Other)
  Sender: FDA-Public Use
  Company Number: PHHY2016BR116151

PATIENT
  Sex: Male
  Weight: 82 kg

DRUGS (1)
  1. GILENYA [Suspect]
     Active Substance: FINGOLIMOD HYDROCHLORIDE
     Indication: MULTIPLE SCLEROSIS
     Dosage: 0.5 MG, QD
     Route: 048
     Dates: start: 2013

REACTIONS (5)
  - Nervousness [Unknown]
  - Sleep disorder [Unknown]
  - Liver disorder [Recovered/Resolved]
  - Decreased appetite [Unknown]
  - Anger [Unknown]

NARRATIVE: CASE EVENT DATE: 2016
